FAERS Safety Report 24696114 (Version 1)
Quarter: 2024Q4

REPORT INFORMATION
  Report Type: Spontaneous
  Country: US (occurrence: US)
  Receive Date: 20241204
  Receipt Date: 20241204
  Transmission Date: 20250115
  Serious: No
  Sender: MYLAN
  Company Number: US-MYLANLABS-2024M1106650

PATIENT
  Age: 65 Year
  Sex: Male
  Weight: 93.89 kg

DRUGS (1)
  1. LATANOPROST [Suspect]
     Active Substance: LATANOPROST
     Indication: Pain
     Dosage: UNK
     Route: 065

REACTIONS (1)
  - Off label use [Unknown]
